FAERS Safety Report 21751902 (Version 2)
Quarter: 2023Q1

REPORT INFORMATION
  Report Type: Report from Study
  Country: US (occurrence: None)
  Receive Date: 20221220
  Receipt Date: 20230109
  Transmission Date: 20230418
  Serious: Yes (Death, Hospitalization)
  Sender: FDA-Public Use
  Company Number: US-ROCHE-3242884

PATIENT
  Age: 63 Year
  Sex: Female
  Weight: 66.1 kg

DRUGS (4)
  1. ATEZOLIZUMAB [Suspect]
     Active Substance: ATEZOLIZUMAB
     Indication: Small cell lung cancer
     Dosage: LAST ADMINISTERED DATE: 20/JUL/2022, 30/AUG/2022, RECEIVED ATEZOLIZUMAB OVER 30-60 MINUTES ON DAY 1
     Route: 041
     Dates: start: 20220328
  2. CARBOPLATIN [Suspect]
     Active Substance: CARBOPLATIN
     Indication: Small cell lung cancer
     Dosage: LAST ADMINISTERED DATE: 13/JUN/2022, CARBOPLATIN: AUC=5 IV ON DAY1 RT:1.5GY FRACTION BID /TOTALDOSE=
     Route: 042
     Dates: start: 20220324
  3. CISPLATIN [Suspect]
     Active Substance: CISPLATIN
     Indication: Small cell lung cancer
     Dosage: LAST ADMINISTERED DATE: 24/MAR/2022
     Route: 042
     Dates: start: 20220324
  4. ETOPOSIDE [Suspect]
     Active Substance: ETOPOSIDE
     Indication: Small cell lung cancer
     Dosage: LAST ADMINISTERED DATE: 15/JUN/2022, CYCLE=21DAYS ETOPOSIDE(VP-16):100MG/M2 IV ON DAYS1-3
     Route: 042
     Dates: start: 20220324

REACTIONS (2)
  - Disease progression [Fatal]
  - Chest pain [Unknown]

NARRATIVE: CASE EVENT DATE: 20220909
